FAERS Safety Report 7347297-6 (Version None)
Quarter: 2011Q1

REPORT INFORMATION
  Report Type: 
  Country: None (occurrence: None)
  Receive Date: 20110303
  Receipt Date: 20110223
  Transmission Date: 20110831
  Serious: Yes (Death, Hospitalization)
  Sender: FDA-Public Use
  Company Number: UTC-005351

PATIENT
  Age: 51 Year
  Sex: Female
  Weight: 72.7 kg

DRUGS (4)
  1. DIURETICS (DIURETICS) [Concomitant]
  2. TYVASO [Suspect]
     Indication: COR PULMONALE CHRONIC
     Dosage: 216 MCG (54 MCG, 4 IN 1 D) , INHALATION
     Route: 055
     Dates: start: 20100505
  3. COUMADIN [Concomitant]
  4. REVATIO [Concomitant]

REACTIONS (1)
  - FLUID RETENTION [None]
